FAERS Safety Report 10953041 (Version 1)
Quarter: 2015Q1

REPORT INFORMATION
  Report Type: Spontaneous
  Country: US (occurrence: US)
  Receive Date: 20150325
  Receipt Date: 20150325
  Transmission Date: 20150721
  Serious: Yes (Death)
  Sender: FDA-Public Use
  Company Number: US-CIPLA LTD.-2015US02373

PATIENT

DRUGS (10)
  1. ATENOLOL. [Suspect]
     Active Substance: ATENOLOL
  2. NITROGLYCERIN. [Suspect]
     Active Substance: NITROGLYCERIN
  3. FUROSEMIDE. [Suspect]
     Active Substance: FUROSEMIDE
  4. WARFARIN [Suspect]
     Active Substance: WARFARIN
  5. ZOLPIDEM TARTARATE [Suspect]
     Active Substance: ZOLPIDEM TARTRATE
  6. SERTRALINE [Suspect]
     Active Substance: SERTRALINE HYDROCHLORIDE
  7. AMLODIPINE [Suspect]
     Active Substance: AMLODIPINE BESYLATE
  8. LISINOPRIL. [Suspect]
     Active Substance: LISINOPRIL
  9. DILTIAZEM [Suspect]
     Active Substance: DILTIAZEM
  10. DONEPEZIL [Suspect]
     Active Substance: DONEPEZIL

REACTIONS (1)
  - Adverse reaction [Fatal]
